FAERS Safety Report 26106440 (Version 1)
Quarter: 2025Q4

REPORT INFORMATION
  Report Type: Spontaneous
  Country: US (occurrence: US)
  Receive Date: 20251201
  Receipt Date: 20251201
  Transmission Date: 20260117
  Serious: Yes (Death, Other)
  Sender: HIKMA
  Company Number: US-HIKMA PHARMACEUTICALS USA INC.-US-H14001-25-12600

PATIENT
  Sex: Male

DRUGS (1)
  1. METHAMPHETAMINE [Suspect]
     Active Substance: METHAMPHETAMINE
     Indication: Product used for unknown indication
     Dosage: UNK
     Route: 042

REACTIONS (6)
  - Respiratory distress [Fatal]
  - Pulse absent [Fatal]
  - Feeling hot [Fatal]
  - Dyspnoea [Fatal]
  - Overdose [Fatal]
  - Drug abuse [Unknown]

NARRATIVE: CASE EVENT DATE: 20240301
